FAERS Safety Report 4461630-4 (Version None)
Quarter: 2004Q3

REPORT INFORMATION
  Report Type: 
  Country: None (occurrence: None)
  Receive Date: 20040923
  Receipt Date: 20040915
  Transmission Date: 20050211
  Serious: Yes (Other)
  Sender: FDA-Public Use
  Company Number: RB-935-2004

PATIENT
  Age: 89 Year
  Sex: Male

DRUGS (12)
  1. BUPRENORPHINE HCL [Suspect]
     Indication: BACK PAIN
     Dosage: 0.2 MG QD/0.2 MG TID/ 0.4 MG TID  PO
     Route: 048
     Dates: start: 20040730, end: 20040806
  2. BUPRENORPHINE HCL [Suspect]
     Indication: BACK PAIN
     Dosage: 0.2 MG QD/0.2 MG TID/ 0.4 MG TID  PO
     Route: 048
     Dates: start: 20040807, end: 20040808
  3. BUPRENORPHINE HCL [Suspect]
     Indication: BACK PAIN
     Dosage: 0.2 MG QD/0.2 MG TID/ 0.4 MG TID  PO
     Route: 048
     Dates: start: 20040809, end: 20040811
  4. PARACETAMOL [Concomitant]
  5. HEPARIN SODIUM [Concomitant]
  6. ACETYLSALICYLIC ACID [Concomitant]
  7. ESOMEPRAZOLE [Concomitant]
  8. CLOPIDOGREL BISULFATE [Concomitant]
  9. LISINOPRIL [Concomitant]
  10. SIMVASTATIN [Concomitant]
  11. CALCIUM ACETATE [Concomitant]
  12. VANCOMYCIN HYDROCHLORIDE [Concomitant]

REACTIONS (5)
  - DYSKINESIA [None]
  - HALLUCINATION, VISUAL [None]
  - METABOLIC ENCEPHALOPATHY [None]
  - STUPOR [None]
  - TOXIC INDUCED ENCEPHALOPATHY [None]
